FAERS Safety Report 7502228-0 (Version None)
Quarter: 2011Q2

REPORT INFORMATION
  Report Type: 
  Country: None (occurrence: None)
  Receive Date: 20110523
  Receipt Date: 20110523
  Transmission Date: 20111010
  Serious: Yes (Hospitalization)
  Sender: FDA-Public Use
  Company Number: None

PATIENT
  Sex: Male
  Weight: 72 kg

DRUGS (3)
  1. CARBOPLATIN [Suspect]
     Dosage: 470 MG
  2. TAXOL [Suspect]
     Dosage: 370 MG
  3. CETUXIMAB (ERBITUX) 740 MG [Suspect]

REACTIONS (6)
  - HAEMODYNAMIC INSTABILITY [None]
  - HAEMATEMESIS [None]
  - CARDIO-RESPIRATORY ARREST [None]
  - PUPIL FIXED [None]
  - NERVOUS SYSTEM DISORDER [None]
  - UNRESPONSIVE TO STIMULI [None]
